FAERS Safety Report 16844409 (Version 1)
Quarter: 2019Q3

REPORT INFORMATION
  Report Type: Spontaneous
  Country: US (occurrence: US)
  Receive Date: 20190924
  Receipt Date: 20190924
  Transmission Date: 20191005
  Serious: Yes (Hospitalization, Other)
  Sender: FDA-Public Use
  Company Number: US-GLAXOSMITHKLINE-US2019AMR171813

PATIENT
  Sex: Male

DRUGS (1)
  1. VENTOLIN [Suspect]
     Active Substance: ALBUTEROL SULFATE
     Indication: PRODUCT USED FOR UNKNOWN INDICATION
     Dosage: UNK
     Route: 065
     Dates: start: 2009

REACTIONS (4)
  - Dyspnoea [Unknown]
  - Pneumonia [Unknown]
  - Myocardial infarction [Unknown]
  - Malaise [Unknown]

NARRATIVE: CASE EVENT DATE: 2018
